FAERS Safety Report 14526681 (Version 1)
Quarter: 2018Q1

REPORT INFORMATION
  Report Type: Spontaneous
  Country: US (occurrence: US)
  Receive Date: 20180213
  Receipt Date: 20180213
  Transmission Date: 20180509
  Serious: No
  Sender: FDA-Public Use
  Company Number: US-LANNETT COMPANY, INC.-US-2017LAN001261

PATIENT

DRUGS (3)
  1. BACLOFEN (20MG) [Suspect]
     Active Substance: BACLOFEN
     Indication: MULTIPLE SCLEROSIS
     Dosage: 20 MG, QID
     Route: 048
     Dates: start: 2015
  2. BACLOFEN (20MG) [Suspect]
     Active Substance: BACLOFEN
     Dosage: DOSE INCREASED FROM 90MG/DAY TO 120MG/DAY
     Route: 048
  3. ACETAMINOPHEN. [Concomitant]
     Active Substance: ACETAMINOPHEN
     Indication: PAIN
     Dosage: 500 MG, QID

REACTIONS (1)
  - Prescribed overdose [Unknown]
